FAERS Safety Report 8471648-2 (Version None)
Quarter: 2012Q2

REPORT INFORMATION
  Report Type: 
  Country: None (occurrence: None)
  Receive Date: 20120627
  Receipt Date: 20120622
  Transmission Date: 20120825
  Serious: Yes (Hospitalization)
  Sender: FDA-Public Use
  Company Number: US-ABBOTT-11P-163-0866759-00

PATIENT
  Sex: Female
  Weight: 154.36 kg

DRUGS (5)
  1. HUMIRA [Suspect]
     Indication: PSORIASIS
     Route: 058
     Dates: start: 20110811, end: 20110922
  2. FOLIC ACID [Concomitant]
     Indication: PRODUCT USED FOR UNKNOWN INDICATION
     Dates: start: 20110901
  3. MULTI-VITAMINS [Concomitant]
     Indication: PRODUCT USED FOR UNKNOWN INDICATION
     Dates: start: 20110901
  4. METOPROLOL TARTRATE [Concomitant]
     Indication: SEASONAL ALLERGY
  5. UNKNOWN TOPICAL [Concomitant]
     Indication: PSORIASIS

REACTIONS (3)
  - CERVICAL INCOMPETENCE [None]
  - ABDOMINAL PAIN [None]
  - VAGINAL DISORDER [None]
